FAERS Safety Report 5670534-0 (Version None)
Quarter: 2008Q1

REPORT INFORMATION
  Report Type: 
  Country: None (occurrence: None)
  Receive Date: 20080318
  Receipt Date: 20080313
  Transmission Date: 20080703
  Serious: Yes (Life-Threatening, Hospitalization)
  Sender: FDA-Public Use
  Company Number: PHNU2008DE01302

PATIENT
  Age: 61 Year
  Sex: Female

DRUGS (3)
  1. DESFERAL [Suspect]
     Indication: HAEMOSIDEROSIS
     Dates: end: 20080309
  2. IBUPROFEN [Suspect]
  3. KATADOLON [Concomitant]

REACTIONS (5)
  - ACUTE RESPIRATORY DISTRESS SYNDROME [None]
  - BLOOD CREATININE INCREASED [None]
  - MECHANICAL VENTILATION [None]
  - OXYGEN SATURATION DECREASED [None]
  - RENAL FAILURE [None]
